FAERS Safety Report 23303842 (Version 2)
Quarter: 2024Q1

REPORT INFORMATION
  Report Type: Report from Study
  Country: US (occurrence: None)
  Receive Date: 20231215
  Receipt Date: 20240101
  Transmission Date: 20240410
  Serious: Yes (Hospitalization)
  Sender: FDA-Public Use
  Company Number: 2023A280762

PATIENT
  Age: 25386 Day
  Sex: Male

DRUGS (19)
  1. LOKELMA [Suspect]
     Active Substance: SODIUM ZIRCONIUM CYCLOSILICATE
     Indication: Hyperkalaemia
     Route: 048
  2. ASPIRIN [Concomitant]
     Active Substance: ASPIRIN
     Indication: Cardiovascular event prophylaxis
     Route: 048
     Dates: start: 20201015
  3. ATORVASTATIN [Concomitant]
     Active Substance: ATORVASTATIN
     Indication: Hyperlipidaemia
     Route: 048
     Dates: start: 2021
  4. VITAMIN D3 [Concomitant]
     Active Substance: CHOLECALCIFEROL
     Indication: Vitamin D deficiency
     Route: 048
     Dates: start: 20170207
  5. COENZYME Q10 [Concomitant]
     Active Substance: DIETARY SUPPLEMENT\UBIDECARENONE
     Indication: Nutritional supplementation
     Route: 048
     Dates: start: 2018
  6. DIALYVITE [Concomitant]
     Active Substance: ASCORBIC ACID\BIOTIN\CALCIUM PANTOTHENATE\COBALAMIN\FOLIC ACID\NIACINAMIDE\PYRIDOXINE HYDROCHLORIDE\
     Indication: Nutritional supplementation
     Route: 048
     Dates: start: 20211117
  7. OMEGA-3 ACIDS [Concomitant]
     Active Substance: OMEGA-3 FATTY ACIDS
     Indication: Nutritional supplementation
     Route: 048
     Dates: start: 2017
  8. PANTOPRAZOLE [Concomitant]
     Active Substance: PANTOPRAZOLE
     Indication: Gastrooesophageal reflux disease
     Route: 048
     Dates: start: 2023
  9. PLAVIX [Concomitant]
     Active Substance: CLOPIDOGREL BISULFATE
     Indication: Anticoagulant therapy
     Route: 048
     Dates: start: 2019
  10. RENVELA [Concomitant]
     Active Substance: SEVELAMER CARBONATE
     Indication: Hyperphosphataemia
     Dosage: 800.0MG UNKNOWN
     Route: 048
  11. SENSIPAR [Concomitant]
     Active Substance: CINACALCET HYDROCHLORIDE
     Indication: Hyperparathyroidism secondary
     Dosage: 30 MG WITH FOOD
     Route: 048
     Dates: start: 20221221
  12. TAMSULOSIN [Concomitant]
     Active Substance: TAMSULOSIN
     Indication: Benign prostatic hyperplasia
     Route: 048
     Dates: start: 2018
  13. TIMOLOL MALEATE [Concomitant]
     Active Substance: TIMOLOL MALEATE
     Indication: Glaucoma
     Route: 047
  14. XALATAN [Concomitant]
     Active Substance: LATANOPROST
     Indication: Glaucoma
     Route: 047
  15. VELTASSA [Concomitant]
     Active Substance: PATIROMER
     Indication: Hyperkalaemia
     Dosage: 8.4 MG ON NON-DIALYSIS DAYD
     Route: 048
     Dates: start: 20230404
  16. FINASTERIDE [Concomitant]
     Active Substance: FINASTERIDE
     Indication: Benign prostatic hyperplasia
     Route: 048
     Dates: start: 2021
  17. CALCITRIOL [Concomitant]
     Active Substance: CALCITRIOL
     Indication: Vitamin D deficiency
     Dosage: PRN
     Route: 042
     Dates: start: 20230303, end: 20230620
  18. CALCITRIOL [Concomitant]
     Active Substance: CALCITRIOL
     Indication: Vitamin D deficiency
     Dosage: PRN
     Route: 042
     Dates: start: 20230620
  19. PRILOCAINE/LIDOCAINE HYDROCHLORIDE [Concomitant]
     Indication: Anaesthesia
     Dosage: 2.5%-2.5%; 1 APPLICATION 1 HOUR PRIOR TO DIALYSIS
     Route: 061
     Dates: start: 20200410

REACTIONS (1)
  - Bacteraemia [Recovered/Resolved]

NARRATIVE: CASE EVENT DATE: 20231008
